FAERS Safety Report 19031091 (Version 1)
Quarter: 2021Q1

REPORT INFORMATION
  Report Type: Spontaneous
  Country: US (occurrence: US)
  Receive Date: 20210318
  Receipt Date: 20210318
  Transmission Date: 20210420
  Serious: Yes (Hospitalization)
  Sender: FDA-Public Use
  Company Number: None

PATIENT
  Age: 74 Year
  Sex: Male

DRUGS (12)
  1. FINASTERIDE. [Concomitant]
     Active Substance: FINASTERIDE
  2. ACYCLOVIR. [Concomitant]
     Active Substance: ACYCLOVIR
  3. CEFEPIME [Concomitant]
     Active Substance: CEFEPIME HYDROCHLORIDE
  4. LEVETIRACETAM. [Concomitant]
     Active Substance: LEVETIRACETAM
  5. LOPERAMIDE [Concomitant]
     Active Substance: LOPERAMIDE
  6. POSACONAZOLE [Concomitant]
     Active Substance: POSACONAZOLE
  7. ANAKINRA [Concomitant]
     Active Substance: ANAKINRA
  8. ALLOPURINOL. [Concomitant]
     Active Substance: ALLOPURINOL
  9. MAG OX [Concomitant]
     Active Substance: MAGNESIUM OXIDE
  10. TECARTUS [Suspect]
     Active Substance: BREXUCABTAGENE AUTOLEUCEL
     Indication: MANTLE CELL LYMPHOMA
     Dosage: ?          OTHER DOSE:2X10^6 2X10^8 CELL;OTHER ROUTE:IV INFUSION?
     Dates: start: 20201106, end: 20201106
  11. FAMOTIDINE. [Concomitant]
     Active Substance: FAMOTIDINE
  12. MELATONIN [Concomitant]
     Active Substance: MELATONIN

REACTIONS (6)
  - Cognitive disorder [None]
  - Resting tremor [None]
  - Immune effector cell-associated neurotoxicity syndrome [None]
  - Depressed level of consciousness [None]
  - Aphasia [None]
  - Disorientation [None]

NARRATIVE: CASE EVENT DATE: 20201124
